FAERS Safety Report 7721843-2 (Version None)
Quarter: 2011Q3

REPORT INFORMATION
  Report Type: 
  Country: None (occurrence: None)
  Receive Date: 20110831
  Receipt Date: 20110819
  Transmission Date: 20111222
  Serious: Yes (Hospitalization)
  Sender: FDA-Public Use
  Company Number: CA-GENENTECH-298093

PATIENT
  Sex: Male
  Weight: 73.5 kg

DRUGS (3)
  1. XOLAIR [Suspect]
     Indication: ASTHMA
     Dosage: 225 MG, Q2W
     Route: 058
     Dates: start: 20060407
  2. XOLAIR [Suspect]
     Dosage: 225 MG, Q2W
     Route: 058
     Dates: start: 20100204
  3. XOLAIR [Suspect]
     Dosage: UNK
     Route: 058
     Dates: start: 20110429

REACTIONS (11)
  - PHARYNGITIS [None]
  - WHEEZING [None]
  - ANGINA PECTORIS [None]
  - CARDIAC DISORDER [None]
  - ATRIAL FIBRILLATION [None]
  - MYOCARDIAL INFARCTION [None]
  - HEAD INJURY [None]
  - PNEUMONIA [None]
  - ASTHMA [None]
  - BREATH SOUNDS ABNORMAL [None]
  - SINUSITIS [None]
